FAERS Safety Report 5058058-5 (Version None)
Quarter: 2006Q3

REPORT INFORMATION
  Report Type: 
  Country: None (occurrence: None)
  Receive Date: 20060721
  Receipt Date: 20060717
  Transmission Date: 20061208
  Serious: Yes (Life-Threatening, Hospitalization)
  Sender: FDA-Public Use
  Company Number: 2006AC01319

PATIENT
  Age: 54 Year
  Sex: Female

DRUGS (5)
  1. ATENOLOL [Suspect]
     Indication: HYPERTENSION
  2. DILTIAZEM HCL [Suspect]
     Indication: HYPERTENSION
  3. IRBESARTAN [Concomitant]
     Indication: HYPERTENSION
  4. METFORMIN [Concomitant]
  5. INSULIN [Concomitant]

REACTIONS (3)
  - HYPERKALAEMIA [None]
  - RENAL FAILURE [None]
  - SINUS ARREST [None]
